FAERS Safety Report 6427227-1 (Version None)
Quarter: 2009Q4

REPORT INFORMATION
  Report Type: 
  Country: None (occurrence: None)
  Receive Date: 20091104
  Receipt Date: 20091030
  Transmission Date: 20100525
  Serious: Yes (Hospitalization)
  Sender: FDA-Public Use
  Company Number: A0802693A

PATIENT
  Sex: Male
  Weight: 66.4 kg

DRUGS (6)
  1. LAPATINIB [Suspect]
     Dosage: 1250MG PER DAY
     Route: 048
     Dates: start: 20090813, end: 20090816
  2. CAPECITABINE [Suspect]
     Dosage: 1650MG TWICE PER DAY
     Route: 048
     Dates: start: 20090813, end: 20090816
  3. OXALIPLATIN [Suspect]
     Dosage: 237MG CYCLIC
     Route: 042
     Dates: start: 20090813, end: 20090816
  4. MORPHINE [Concomitant]
     Indication: PAIN
     Dosage: 5MG FOUR TIMES PER DAY
     Route: 048
     Dates: start: 20090721, end: 20090817
  5. MORPHINE [Concomitant]
     Dosage: 2.5MG SIX TIMES PER DAY
     Route: 058
     Dates: start: 20090818
  6. ZOPICLONE [Concomitant]
     Indication: SLEEP DISORDER
     Dosage: 7.5MG AT NIGHT
     Route: 048
     Dates: start: 20090724

REACTIONS (5)
  - DEHYDRATION [None]
  - DIARRHOEA [None]
  - METASTASES TO CENTRAL NERVOUS SYSTEM [None]
  - NAUSEA [None]
  - VOMITING [None]
